FAERS Safety Report 7328975-1 (Version None)
Quarter: 2011Q1

REPORT INFORMATION
  Report Type: 
  Country: None (occurrence: None)
  Receive Date: 20110303
  Receipt Date: 20110225
  Transmission Date: 20110831
  Serious: No
  Sender: FDA-Public Use
  Company Number: DE-BAXTER-2010BH031056

PATIENT
  Age: 60 Year
  Sex: Male
  Weight: 72 kg

DRUGS (6)
  1. PANTOZOL [Concomitant]
     Route: 048
  2. RADEDORM [Concomitant]
     Route: 048
  3. GAMMAGARD LIQUID [Suspect]
     Indication: SECONDARY IMMUNODEFICIENCY
     Route: 065
     Dates: start: 20101220, end: 20101220
  4. IBUPROFEN [Concomitant]
     Indication: PAIN
     Route: 048
  5. GABAPENTIN [Concomitant]
     Indication: HERPES ZOSTER
     Route: 048
  6. GAMMAGARD LIQUID [Suspect]
     Indication: CHRONIC LYMPHOCYTIC LEUKAEMIA
     Route: 065
     Dates: start: 20101220, end: 20101220

REACTIONS (5)
  - AGITATION [None]
  - PRURITUS [None]
  - BODY TEMPERATURE INCREASED [None]
  - TACHYCARDIA [None]
  - CHILLS [None]
